FAERS Safety Report 6254927-9 (Version None)
Quarter: 2009Q3

REPORT INFORMATION
  Report Type: 
  Country: None (occurrence: None)
  Receive Date: 20090702
  Receipt Date: 20090701
  Transmission Date: 20100115
  Serious: Yes (Hospitalization)
  Sender: FDA-Public Use
  Company Number: US-BRISTOL-MYERS SQUIBB COMPANY-14686893

PATIENT
  Sex: Male

DRUGS (3)
  1. ERBITUX [Suspect]
     Indication: HEAD AND NECK CANCER
  2. CISPLATIN [Concomitant]
  3. RADIATION THERAPY [Concomitant]

REACTIONS (1)
  - HYPONATRAEMIA [None]
